FAERS Safety Report 9798663 (Version 2)
Quarter: 2015Q3

REPORT INFORMATION
  Report Type: Spontaneous
  Country: US (occurrence: US)
  Receive Date: 20140106
  Receipt Date: 20150806
  Transmission Date: 20151125
  Serious: Yes (Hospitalization)
  Sender: FDA-Public Use
  Company Number: US-GILEAD-2010-0029671

PATIENT
  Age: 47 Year
  Sex: Female
  Weight: 90.72 kg

DRUGS (14)
  1. LETAIRIS [Suspect]
     Active Substance: AMBRISENTAN
     Indication: PULMONARY ARTERIAL HYPERTENSION
     Route: 048
     Dates: start: 20090109
  2. HUMALOG [Concomitant]
     Active Substance: INSULIN LISPRO
  3. LANTUS [Concomitant]
     Active Substance: INSULIN GLARGINE
  4. PAXIL [Concomitant]
     Active Substance: PAROXETINE HYDROCHLORIDE
  5. ALDACTONE [Concomitant]
     Active Substance: SPIRONOLACTONE
  6. PROAIR HFA [Concomitant]
     Active Substance: ALBUTEROL SULFATE
  7. ZAROXOLYN [Concomitant]
     Active Substance: METOLAZONE
  8. DEMADEX [Concomitant]
     Active Substance: TORSEMIDE
  9. K-DUR [Concomitant]
     Active Substance: POTASSIUM CHLORIDE
  10. FOLIC ACID. [Concomitant]
     Active Substance: FOLIC ACID
  11. ASA [Concomitant]
     Active Substance: ASPIRIN
  12. FLEXERIL [Concomitant]
     Active Substance: CYCLOBENZAPRINE HYDROCHLORIDE
  13. NEURONTIN [Concomitant]
     Active Substance: GABAPENTIN
  14. HYDROCODONE BITARTRATE AND ACETAMINOPHEN [Concomitant]
     Active Substance: ACETAMINOPHEN\HYDROCODONE BITARTRATE

REACTIONS (1)
  - Oedema [Recovered/Resolved]

NARRATIVE: CASE EVENT DATE: 20100516
